FAERS Safety Report 9882586 (Version 2)
Quarter: 2014Q1

REPORT INFORMATION
  Report Type: Report from Study
  Country: US (occurrence: US)
  Receive Date: 20140207
  Receipt Date: 20140320
  Transmission Date: 20141002
  Serious: Yes (Other)
  Sender: FDA-Public Use
  Company Number: US-ACTELION-A-US2014-94545

PATIENT
  Age: 52 Year
  Sex: Female

DRUGS (2)
  1. TRACLEER [Suspect]
     Indication: PULMONARY ARTERIAL HYPERTENSION
     Dosage: 125 MG, BID
     Route: 048
     Dates: start: 2008
  2. TRACLEER [Suspect]
     Dosage: UNK
     Route: 048
     Dates: start: 2008, end: 2008

REACTIONS (1)
  - Crohn^s disease [Recovering/Resolving]
